FAERS Safety Report 7905311-0 (Version None)
Quarter: 2011Q4

REPORT INFORMATION
  Report Type: 
  Country: None (occurrence: None)
  Receive Date: 20111109
  Receipt Date: 20110511
  Transmission Date: 20120403
  Serious: Yes (Other)
  Sender: FDA-Public Use
  Company Number: PHHY2011FR40156

PATIENT
  Age: 47 Year
  Sex: Female

DRUGS (6)
  1. HYDROXYUREA [Concomitant]
     Dosage: UNK UKN, UNK
  2. EPREX [Concomitant]
     Dosage: 10000 IU, FOR 10 DAYS
  3. TACROLIMUS [Suspect]
     Dosage: UNK UKN, UNK
  4. MYCOPHENOLATE MOFETIL [Suspect]
     Dosage: UNK UKN, UNK
  5. BASILIXIMAB [Suspect]
     Dosage: UNK UKN, UNK
  6. TACROLIMUS [Suspect]
     Dosage: UNK UKN, UNK

REACTIONS (2)
  - RENAL TUBULAR ACIDOSIS [None]
  - CONVULSION [None]
